FAERS Safety Report 16281277 (Version 2)
Quarter: 2019Q2

REPORT INFORMATION
  Report Type: Report from Study
  Country: AT (occurrence: AT)
  Receive Date: 20190507
  Receipt Date: 20190528
  Transmission Date: 20190711
  Serious: Yes (Hospitalization, Other)
  Sender: FDA-Public Use
  Company Number: AT-JNJFOC-20190504316

PATIENT
  Sex: Male
  Weight: 115 kg

DRUGS (9)
  1. XARELTO [Suspect]
     Active Substance: RIVAROXABAN
     Indication: ATRIAL FIBRILLATION
     Route: 048
     Dates: start: 20170221, end: 20190111
  2. CONCOR [Concomitant]
     Active Substance: BISOPROLOL FUMARATE
     Route: 048
  3. ATORVASTATIN [Concomitant]
     Active Substance: ATORVASTATIN
     Dosage: 20 MG, HS
     Route: 048
  4. THROMBO ASS [Concomitant]
     Active Substance: ASPIRIN
     Indication: ANTICOAGULANT THERAPY
     Route: 048
     Dates: start: 20190112, end: 20190121
  5. XARELTO [Suspect]
     Active Substance: RIVAROXABAN
     Indication: ANTICOAGULANT THERAPY
     Route: 048
     Dates: start: 20170221, end: 20190111
  6. XARELTO [Suspect]
     Active Substance: RIVAROXABAN
     Indication: ATRIAL FIBRILLATION
     Route: 048
     Dates: start: 20190122
  7. XARELTO [Suspect]
     Active Substance: RIVAROXABAN
     Indication: ANTICOAGULANT THERAPY
     Route: 048
     Dates: start: 20190122
  8. NEURONTIN [Concomitant]
     Active Substance: GABAPENTIN
     Dosage: 300 MG, HS
     Route: 048
  9. TRITACE [Concomitant]
     Active Substance: RAMIPRIL
     Route: 048

REACTIONS (1)
  - Ischaemic stroke [Recovered/Resolved]

NARRATIVE: CASE EVENT DATE: 20190116
